FAERS Safety Report 19452768 (Version 1)
Quarter: 2021Q2

REPORT INFORMATION
  Report Type: Spontaneous
  Country: US (occurrence: US)
  Receive Date: 20210623
  Receipt Date: 20210623
  Transmission Date: 20210717
  Serious: Yes (Other)
  Sender: FDA-Public Use
  Company Number: US-CELGENEUS-USA-20210604844

PATIENT
  Sex: Female

DRUGS (2)
  1. REVLIMID [Suspect]
     Active Substance: LENALIDOMIDE
     Indication: PLASMA CELL MYELOMA
  2. REVLIMID [Suspect]
     Active Substance: LENALIDOMIDE
     Indication: GENITAL CANCER MALE
     Dosage: 25 MILLIGRAM
     Route: 048
     Dates: start: 20210524

REACTIONS (1)
  - Nail disorder [Recovered/Resolved]

NARRATIVE: CASE EVENT DATE: 2021
